FAERS Safety Report 7596150-1 (Version None)
Quarter: 2011Q3

REPORT INFORMATION
  Report Type: 
  Country: None (occurrence: None)
  Receive Date: 20110707
  Receipt Date: 20110628
  Transmission Date: 20111222
  Serious: Yes (Hospitalization)
  Sender: FDA-Public Use
  Company Number: US-ASTRAZENECA-2011SE38720

PATIENT
  Age: 50 Year
  Sex: Female

DRUGS (3)
  1. VALIUM [Concomitant]
     Dosage: AS REQUIRED
  2. LITHIUM CARBONATE [Concomitant]
  3. SEROQUEL [Suspect]
     Indication: BIPOLAR DISORDER
     Route: 048

REACTIONS (1)
  - ANTIPSYCHOTIC DRUG LEVEL INCREASED [None]
